FAERS Safety Report 18669092 (Version 3)
Quarter: 2021Q1

REPORT INFORMATION
  Report Type: Spontaneous
  Country: TW (occurrence: TW)
  Receive Date: 20201228
  Receipt Date: 20210210
  Transmission Date: 20210419
  Serious: Yes (Hospitalization, Other)
  Sender: FDA-Public Use
  Company Number: NVSC2020TW341962

PATIENT
  Age: 52 Year
  Sex: Male

DRUGS (1)
  1. FINGOLIMOD. [Suspect]
     Active Substance: FINGOLIMOD
     Indication: MULTIPLE SCLEROSIS
     Dosage: 0.5 MG, QD
     Route: 048
     Dates: start: 20140904, end: 20170206

REACTIONS (3)
  - Panniculitis [Recovering/Resolving]
  - Cryptococcal cutaneous infection [Recovering/Resolving]
  - Lymphopenia [Recovering/Resolving]
